FAERS Safety Report 13602382 (Version 1)
Quarter: 2017Q2

REPORT INFORMATION
  Report Type: Spontaneous
  Country: AU (occurrence: AU)
  Receive Date: 20170601
  Receipt Date: 20170601
  Transmission Date: 20170830
  Serious: Yes (Hospitalization, Other)
  Sender: FDA-Public Use
  Company Number: PHHY2017AU077462

PATIENT
  Age: 63 Year
  Sex: Male

DRUGS (1)
  1. PAZOPANIB [Suspect]
     Active Substance: PAZOPANIB
     Indication: CLEAR CELL RENAL CELL CARCINOMA
     Dosage: 800 MG, QD
     Route: 065

REACTIONS (13)
  - Cough [Unknown]
  - Weight decreased [Unknown]
  - Diarrhoea [Unknown]
  - Chills [Unknown]
  - Pruritus [Unknown]
  - Fatigue [Unknown]
  - Decreased appetite [Unknown]
  - Splinter haemorrhages [Unknown]
  - Respiratory syncytial virus test positive [Unknown]
  - Pyrexia [Unknown]
  - Liver function test increased [Unknown]
  - Rash maculo-papular [Unknown]
  - Lichenification [Unknown]
